FAERS Safety Report 8421038 (Version 4)
Quarter: 2012Q4

REPORT INFORMATION
  Report Type: 
  Country: US (occurrence: US)
  Receive Date: 20120222
  Receipt Date: 20120925
  Transmission Date: 20130627
  Serious: Yes (Hospitalization)
  Sender: FDA-Public Use
  Company Number: US-PFIZER INC-2011123699

PATIENT
  Age: 81 Year
  Sex: Female
  Weight: 65.31 kg

DRUGS (6)
  1. LYRICA [Suspect]
     Indication: NEUROPATHY PERIPHERAL
     Dosage: 100 mg, as needed
     Route: 048
     Dates: end: 20120221
  2. LYRICA [Suspect]
     Indication: PAIN
     Dosage: UNK
     Dates: start: 2012
  3. BENICAR [Concomitant]
     Dosage: UNK
  4. TRICOR [Concomitant]
     Dosage: UNK
  5. VERAPAMIL [Concomitant]
     Dosage: UNK
  6. PLAVIX [Concomitant]
     Dosage: UNK

REACTIONS (3)
  - Urinary tract infection [Unknown]
  - Pain [Not Recovered/Not Resolved]
  - Drug ineffective [Unknown]
